FAERS Safety Report 6763274-8 (Version None)
Quarter: 2010Q2

REPORT INFORMATION
  Report Type: 
  Country: None (occurrence: None)
  Receive Date: 20100608
  Receipt Date: 20100608
  Transmission Date: 20101027
  Serious: Yes (Life-Threatening, Hospitalization)
  Sender: FDA-Public Use
  Company Number: None

PATIENT
  Age: 34 Year
  Sex: Female
  Weight: 63.5036 kg

DRUGS (1)
  1. EFFEXOR XR [Suspect]
     Indication: BIPOLAR DISORDER
     Dates: start: 20100522, end: 20100529

REACTIONS (2)
  - BIPOLAR I DISORDER [None]
  - SUICIDE ATTEMPT [None]
